FAERS Safety Report 12590897 (Version 2)
Quarter: 2016Q3

REPORT INFORMATION
  Report Type: Spontaneous
  Country: US (occurrence: US)
  Receive Date: 20160726
  Receipt Date: 20160726
  Transmission Date: 20161109
  Serious: No
  Sender: FDA-Public Use
  Company Number: US-UNITED THERAPEUTICS-UNT-2015-015054

PATIENT
  Age: 73 Year
  Sex: Male
  Weight: 73.47 kg

DRUGS (2)
  1. REMODULIN [Suspect]
     Active Substance: TREPROSTINIL
     Indication: PULMONARY HYPERTENSION
     Dosage: 0.038 ?G/KG/MIN, CONTINUING
     Route: 041
     Dates: start: 20150522
  2. COUMADIN [Concomitant]
     Active Substance: WARFARIN SODIUM
     Indication: PRODUCT USED FOR UNKNOWN INDICATION

REACTIONS (4)
  - Device use error [Unknown]
  - Drug dose omission [Unknown]
  - Dyspnoea exertional [Unknown]
  - Heart rate increased [Unknown]

NARRATIVE: CASE EVENT DATE: 201511
